FAERS Safety Report 10062271 (Version 1)
Quarter: 2014Q1

REPORT INFORMATION
  Report Type: Spontaneous
  Country: US (occurrence: None)
  Receive Date: 20140312
  Receipt Date: 20140312
  Transmission Date: 20141002
  Serious: Yes (Other)
  Sender: FDA-Public Use
  Company Number: E2080-00611-SPO-US

PATIENT
  Age: 12 Year
  Sex: Male

DRUGS (2)
  1. BANZEL [Suspect]
     Indication: CONVULSION
     Dosage: 1000 MG AM AND 400 MG PM, ORAL FEB/2013 - ONGOING
     Route: 048
     Dates: start: 201302
  2. LAMICTAL (LAMOTRIGINE) [Suspect]
     Indication: CONVULSION
     Dosage: UNKNOWN , UNKNOWN , ORAL
     Route: 048
     Dates: start: 2012

REACTIONS (1)
  - Convulsion [None]
